FAERS Safety Report 18969818 (Version 2)
Quarter: 2022Q1

REPORT INFORMATION
  Report Type: Report from Study
  Country: CH (occurrence: CH)
  Receive Date: 20210304
  Receipt Date: 20220214
  Transmission Date: 20220423
  Serious: Yes (Other)
  Sender: FDA-Public Use
  Company Number: CH-PFIZER INC-2021227945

PATIENT
  Age: 22 Month

DRUGS (3)
  1. SIROLIMUS [Suspect]
     Active Substance: SIROLIMUS
     Indication: Vascular malformation
     Dosage: 1.4 MG
  2. SIROLIMUS [Suspect]
     Active Substance: SIROLIMUS
     Dosage: 1 MG
  3. SULFAMETHOXAZOLE\TRIMETHOPRIM [Concomitant]
     Active Substance: SULFAMETHOXAZOLE\TRIMETHOPRIM
     Indication: Antibiotic prophylaxis
     Dosage: UNK (3 DAYS/WEEK)

REACTIONS (5)
  - Device related infection [Recovered/Resolved]
  - Staphylococcal infection [Recovered/Resolved]
  - Otitis media [Recovered/Resolved]
  - Upper respiratory tract infection [Recovered/Resolved]
  - Haemangioma-thrombocytopenia syndrome [Recovered/Resolved]
